FAERS Safety Report 24536022 (Version 2)
Quarter: 2024Q4

REPORT INFORMATION
  Report Type: Report from Study
  Country: CO (occurrence: CO)
  Receive Date: 20241022
  Receipt Date: 20241101
  Transmission Date: 20250114
  Serious: Yes (Death, Life-Threatening, Hospitalization)
  Sender: MYLAN
  Company Number: CO-VIATRISJAPAN-2024M1062106

PATIENT
  Age: 12 Year
  Sex: Female
  Weight: 12.6 kg

DRUGS (10)
  1. CYSTAGON [Suspect]
     Active Substance: CYSTEAMINE BITARTRATE
     Indication: Cystinosis
     Dosage: 150 MILLIGRAM, Q6H (EVERY SIX HOURS)
     Route: 048
     Dates: start: 2020, end: 20241015
  2. CYSTEAMINE HYDROCHLORIDE [Suspect]
     Active Substance: CYSTEAMINE HYDROCHLORIDE
     Indication: Cystinosis
     Dosage: 1 GTT DROPS, Q6H (EVERY SIX HOURS)
     Route: 047
     Dates: start: 2020
  3. CYSTEAMINE HYDROCHLORIDE [Suspect]
     Active Substance: CYSTEAMINE HYDROCHLORIDE
     Dosage: 2 GTT DROPS, QID (FOUR TIMES A DAY)
     Route: 047
     Dates: start: 2020, end: 20241015
  4. ENALAPRIL [Concomitant]
     Active Substance: ENALAPRIL
     Indication: Hypertension
     Dosage: 5 MILLIGRAM (EVERY 12 HOURS)
     Route: 065
  5. ENALAPRIL [Concomitant]
     Active Substance: ENALAPRIL
     Dosage: 7.5 MILLIGRAM, QD (PER DAY)
     Route: 065
  6. AMLODIPINE [Concomitant]
     Active Substance: AMLODIPINE BESYLATE
     Indication: Hypertension
     Dosage: 5 MILLIGRAM, QD (EVERY 24 HOURS)
     Route: 065
  7. SPIRONOLACTONE [Concomitant]
     Active Substance: SPIRONOLACTONE
     Indication: Hypertension
     Dosage: 12.5 MILLIGRAM (EVERY 12 HOURS)
     Route: 065
  8. CARVEDILOL [Concomitant]
     Active Substance: CARVEDILOL
     Indication: Cardiomyopathy
     Dosage: 6.25 MILLIGRAM, QD (PER DAY)
     Route: 065
  9. LEVOTHYROXINE [Concomitant]
     Active Substance: LEVOTHYROXINE
     Indication: Hypothyroidism
     Dosage: 50 MILLIGRAM, QD (PER DAY)
     Route: 065
  10. CALCIUM CARBONATE [Concomitant]
     Active Substance: CALCIUM CARBONATE
     Indication: Vitamin supplementation
     Dosage: 500 MILLIGRAM, QD (PER DAY)
     Route: 065

REACTIONS (6)
  - Cardiac arrest [Fatal]
  - Cardio-respiratory arrest [Recovered/Resolved]
  - Pneumonia [Recovered/Resolved]
  - Haemodynamic instability [Recovered/Resolved]
  - Vital functions abnormal [Unknown]
  - Device related infection [Recovered/Resolved]

NARRATIVE: CASE EVENT DATE: 20240612
